FAERS Safety Report 23659085 (Version 2)
Quarter: 2024Q3

REPORT INFORMATION
  Report Type: Spontaneous
  Country: JP (occurrence: JP)
  Receive Date: 20240321
  Receipt Date: 20240718
  Transmission Date: 20241017
  Serious: Yes (Hospitalization)
  Sender: EISAI
  Company Number: JP-Eisai-202304179_LEN-EC_P_1

PATIENT
  Age: 65 Year
  Sex: Female

DRUGS (5)
  1. LENVIMA [Suspect]
     Active Substance: LENVATINIB
     Indication: Endometrial cancer
     Route: 048
     Dates: start: 20230411
  2. LENVIMA [Suspect]
     Active Substance: LENVATINIB
     Route: 048
     Dates: start: 2023, end: 2023
  3. LENVIMA [Suspect]
     Active Substance: LENVATINIB
     Route: 048
     Dates: start: 2023, end: 2023
  4. LENVIMA [Suspect]
     Active Substance: LENVATINIB
     Dosage: 5 DAYS-ON/2 DAYS-OFF SCHEDULE
     Route: 048
     Dates: start: 2023, end: 20230901
  5. KEYTRUDA [Suspect]
     Active Substance: PEMBROLIZUMAB
     Indication: Endometrial cancer
     Route: 042
     Dates: start: 20230411, end: 202306

REACTIONS (3)
  - Platelet count decreased [Not Recovered/Not Resolved]
  - Pyrexia [Recovered/Resolved]
  - Immune-mediated dermatitis [Recovered/Resolved]

NARRATIVE: CASE EVENT DATE: 20230101
